FAERS Safety Report 8002823-9 (Version None)
Quarter: 2011Q4

REPORT INFORMATION
  Report Type: 
  Country: None (occurrence: None)
  Receive Date: 20111222
  Receipt Date: 20101115
  Transmission Date: 20120403
  Serious: No
  Sender: FDA-Public Use
  Company Number: US-GLAXOSMITHKLINE-A0892555A

PATIENT
  Sex: Male

DRUGS (5)
  1. AVODART [Suspect]
     Indication: PROSTATIC SPECIFIC ANTIGEN INCREASED
     Dosage: .5MG PER DAY
     Route: 048
     Dates: start: 20100101
  2. UNSPECIFIED MEDICATION [Concomitant]
  3. TOVIAZ [Suspect]
     Indication: INCONTINENCE
     Dosage: 8MG PER DAY
     Route: 048
     Dates: start: 20100101
  4. RED YEAST RICE [Concomitant]
  5. FISH OIL [Concomitant]

REACTIONS (5)
  - INCONTINENCE [None]
  - URINARY INCONTINENCE [None]
  - VISION BLURRED [None]
  - ABDOMINAL PAIN UPPER [None]
  - DRUG INTERACTION [None]
